FAERS Safety Report 9132186 (Version 1)
Quarter: 2013Q1

REPORT INFORMATION
  Report Type: Report from Study
  Country: US (occurrence: US)
  Receive Date: 20130301
  Receipt Date: 20130301
  Transmission Date: 20140127
  Serious: No
  Sender: FDA-Public Use
  Company Number: US-MYLANLABS-2012S1021029

PATIENT
  Age: 50 Year
  Sex: Male

DRUGS (2)
  1. AMNESTEEM CAPSULES [Suspect]
     Dates: start: 2012
  2. AMNESTEEM CAPSULES [Suspect]
     Dates: end: 2012

REACTIONS (3)
  - Constipation [Not Recovered/Not Resolved]
  - Lip dry [Not Recovered/Not Resolved]
  - Arthralgia [Not Recovered/Not Resolved]
